FAERS Safety Report 9238070 (Version 1)
Quarter: 2013Q2

REPORT INFORMATION
  Report Type: Spontaneous
  Country: HR (occurrence: HR)
  Receive Date: 20130418
  Receipt Date: 20130418
  Transmission Date: 20140414
  Serious: Yes (Other)
  Sender: FDA-Public Use
  Company Number: HR-BAYER-2013-046579

PATIENT
  Sex: Female
  Weight: 70 kg

DRUGS (1)
  1. AVELOX 400 MG FILM COATED TABLETS [Suspect]
     Indication: PNEUMONIA
     Dosage: DAILY DOSE 400 MG
     Route: 048
     Dates: start: 20130309, end: 20130317

REACTIONS (2)
  - Heart rate irregular [None]
  - Palpitations [None]
